FAERS Safety Report 5829815-X (Version None)
Quarter: 2008Q3

REPORT INFORMATION
  Report Type: 
  Country: None (occurrence: None)
  Receive Date: 20080801
  Receipt Date: 20080507
  Transmission Date: 20090109
  Serious: No
  Sender: FDA-Public Use
  Company Number: US-BAYER-200812221BCC

PATIENT
  Sex: Male
  Weight: 67 kg

DRUGS (4)
  1. ALEVE (CAPLET) [Suspect]
     Indication: HEADACHE
     Dosage: TOTAL DAILY DOSE: 440 MG  UNIT DOSE: 220 MG
     Route: 048
  2. NIFEDIPINE [Concomitant]
  3. TRAZODONE HCL [Concomitant]
  4. AMBIEN [Concomitant]
     Indication: SLEEP DISORDER

REACTIONS (1)
  - HEADACHE [None]
